FAERS Safety Report 4339961-8 (Version None)
Quarter: 2004Q2

REPORT INFORMATION
  Report Type: 
  Country: None (occurrence: None)
  Receive Date: 20040414
  Receipt Date: 20040402
  Transmission Date: 20050107
  Serious: Yes (Death, Hospitalization, Other)
  Sender: FDA-Public Use
  Company Number: 2004022759

PATIENT
  Age: 63 Year
  Sex: Female

DRUGS (2)
  1. LOPID [Suspect]
     Indication: ILL-DEFINED DISORDER
     Dosage: 1200 MG (BID), ORAL
     Route: 048
     Dates: end: 20031115
  2. SIMVASTATIN [Suspect]
     Indication: ILL-DEFINED DISORDER
     Dosage: ORAL
     Route: 048
     Dates: end: 20031115

REACTIONS (3)
  - DIALYSIS [None]
  - RENAL FAILURE ACUTE [None]
  - RHABDOMYOLYSIS [None]
